FAERS Safety Report 13678250 (Version 3)
Quarter: 2017Q3

REPORT INFORMATION
  Report Type: Report from Study
  Country: KR (occurrence: KR)
  Receive Date: 20170622
  Receipt Date: 20170717
  Transmission Date: 20171127
  Serious: Yes (Death, Life-Threatening, Hospitalization, Other)
  Sender: FDA-Public Use
  Company Number: KR-OTSUKA-JP-2014-10083

PATIENT
  Age: 44 Year
  Sex: Female

DRUGS (18)
  1. POTASSIUM CHLORIDE. [Concomitant]
     Active Substance: POTASSIUM CHLORIDE
     Indication: HYPONATRAEMIA
     Dosage: 4 G, QD
     Route: 048
     Dates: start: 20140103, end: 20140103
  2. CODEINE PHOSPHATE [Concomitant]
     Active Substance: CODEINE PHOSPHATE
     Indication: HYPERVOLAEMIA
  3. ALDACTONE [Concomitant]
     Active Substance: SPIRONOLACTONE
     Indication: HYPONATRAEMIA
     Dosage: 25 MG, QD
     Route: 048
     Dates: start: 20131219, end: 20140106
  4. POTASSIUM CHLORIDE. [Concomitant]
     Active Substance: POTASSIUM CHLORIDE
     Indication: HYPERVOLAEMIA
  5. FOLIC ACID. [Concomitant]
     Active Substance: FOLIC ACID
     Indication: HYPERVOLAEMIA
  6. DEXTROSE. [Concomitant]
     Active Substance: DEXTROSE
     Indication: HYPERVOLAEMIA
  7. FOLIC ACID. [Concomitant]
     Active Substance: FOLIC ACID
     Indication: HYPONATRAEMIA
     Dosage: 1 MG, QD
     Route: 048
     Dates: start: 20140101
  8. MEGESTROL ACETATE. [Concomitant]
     Active Substance: MEGESTROL ACETATE
     Indication: HYPERVOLAEMIA
  9. OXYCODONE HCL HYDRATE [Concomitant]
     Indication: HYPONATRAEMIA
     Dosage: 20 MG, QD
     Route: 048
     Dates: start: 20131222
  10. FUROSEMIDE. [Concomitant]
     Active Substance: FUROSEMIDE
     Indication: HYPONATRAEMIA
     Dosage: 10 DF(AMPLE/DAY), QD (STRENGTH: 20MG/2ML)
     Route: 042
     Dates: start: 20131231, end: 20140106
  11. CODEINE PHOSPHATE [Concomitant]
     Active Substance: CODEINE PHOSPHATE
     Indication: HYPONATRAEMIA
     Dosage: 40 MG, QD
     Route: 048
     Dates: start: 20131026
  12. TOLVAPTAN [Suspect]
     Active Substance: TOLVAPTAN
     Indication: HYPONATRAEMIA
     Dosage: 7.5 MG, QD
     Route: 048
     Dates: start: 20140103, end: 20140103
  13. TOLVAPTAN [Suspect]
     Active Substance: TOLVAPTAN
     Indication: HYPERVOLAEMIA
     Dosage: 15 MG, QD
     Route: 048
     Dates: start: 20140104, end: 20140106
  14. OXYCODONE HCL HYDRATE [Concomitant]
     Indication: HYPERVOLAEMIA
  15. MEGESTROL ACETATE. [Concomitant]
     Active Substance: MEGESTROL ACETATE
     Indication: HYPONATRAEMIA
     Dosage: 20 ML, QD (STRENGTH: 40MG/ML)
     Route: 048
     Dates: start: 20140102, end: 20140106
  16. ALDACTONE [Concomitant]
     Active Substance: SPIRONOLACTONE
     Indication: HYPERVOLAEMIA
  17. DEXTROSE. [Concomitant]
     Active Substance: DEXTROSE
     Indication: HYPONATRAEMIA
     Dosage: 360 ML, QD (STRENGTH: 10G/200ML)
     Route: 042
     Dates: start: 20140102, end: 20140106
  18. FUROSEMIDE. [Concomitant]
     Active Substance: FUROSEMIDE
     Indication: HYPERVOLAEMIA

REACTIONS (3)
  - Mesothelioma malignant [Fatal]
  - Prescribed underdose [Unknown]
  - Acute kidney injury [Not Recovered/Not Resolved]

NARRATIVE: CASE EVENT DATE: 20140103
